FAERS Safety Report 10561839 (Version 2)
Quarter: 2014Q4

REPORT INFORMATION
  Report Type: Spontaneous
  Country: CA (occurrence: CA)
  Receive Date: 20141104
  Receipt Date: 20141111
  Transmission Date: 20150529
  Serious: Yes (Other)
  Sender: FDA-Public Use
  Company Number: CA-ROCHE-1484800

PATIENT
  Age: 54 Year
  Sex: Female

DRUGS (9)
  1. VENTOLIN [Concomitant]
     Active Substance: ALBUTEROL SULFATE
  2. SYMBICORT [Concomitant]
     Active Substance: BUDESONIDE\FORMOTEROL FUMARATE DIHYDRATE
  3. SPIRIVA [Concomitant]
     Active Substance: TIOTROPIUM BROMIDE MONOHYDRATE
  4. BISOPROLOL [Concomitant]
     Active Substance: BISOPROLOL
  5. XOLAIR [Suspect]
     Active Substance: OMALIZUMAB
     Indication: ASTHMA
     Route: 058
     Dates: start: 20131119
  6. PLAVIX [Concomitant]
     Active Substance: CLOPIDOGREL BISULFATE
  7. COUMADIN [Concomitant]
     Active Substance: WARFARIN SODIUM
  8. SINGULAIR [Concomitant]
     Active Substance: MONTELUKAST SODIUM
  9. XOLAIR [Suspect]
     Active Substance: OMALIZUMAB
     Route: 058
     Dates: start: 20140930, end: 20140930

REACTIONS (5)
  - Fall [Unknown]
  - Bone density decreased [Unknown]
  - Spinal fracture [Unknown]
  - Contusion [Unknown]
  - International normalised ratio increased [Unknown]

NARRATIVE: CASE EVENT DATE: 201404
